FAERS Safety Report 18948479 (Version 1)
Quarter: 2021Q1

REPORT INFORMATION
  Report Type: Spontaneous
  Country: US (occurrence: US)
  Receive Date: 20210226
  Receipt Date: 20210226
  Transmission Date: 20210420
  Serious: No
  Sender: FDA-Public Use
  Company Number: US-ROCHE-2548113

PATIENT
  Age: 16 Year
  Sex: Male

DRUGS (3)
  1. PRILOSEC [Concomitant]
     Active Substance: OMEPRAZOLE MAGNESIUM
     Indication: OESOPHAGITIS
  2. ALBUTEROL. [Concomitant]
     Active Substance: ALBUTEROL
     Indication: WHEEZING
  3. XOLAIR [Suspect]
     Active Substance: OMALIZUMAB
     Indication: FOOD ALLERGY
     Route: 065

REACTIONS (5)
  - Supraventricular extrasystoles [Unknown]
  - Dyspnoea [Unknown]
  - Chest discomfort [Unknown]
  - Off label use [Unknown]
  - Intentional product use issue [Unknown]
